FAERS Safety Report 10267739 (Version 1)
Quarter: 2014Q2

REPORT INFORMATION
  Report Type: Spontaneous
  Country: US (occurrence: US)
  Receive Date: 20140630
  Receipt Date: 20140630
  Transmission Date: 20141212
  Serious: No
  Sender: FDA-Public Use
  Company Number: US-TEVA-491439USA

PATIENT
  Sex: Female
  Weight: 113.5 kg

DRUGS (1)
  1. PARAGARD 380A [Suspect]
     Indication: CONTRACEPTION
     Route: 015
     Dates: start: 20140520, end: 20140624

REACTIONS (2)
  - Feeling abnormal [Recovered/Resolved]
  - Device expulsion [Recovered/Resolved]
